FAERS Safety Report 8487959-0 (Version None)
Quarter: 2012Q3

REPORT INFORMATION
  Report Type: 
  Country: None (occurrence: None)
  Receive Date: 20120705
  Receipt Date: 20120626
  Transmission Date: 20120928
  Serious: Yes (Hospitalization)
  Sender: FDA-Public Use
  Company Number: US-BAYER-2012-060844

PATIENT
  Age: 38 Year
  Sex: Female
  Weight: 58.957 kg

DRUGS (6)
  1. YAZ [Suspect]
     Indication: PREMENSTRUAL SYNDROME
  2. YAZ [Suspect]
  3. ZOLOFT [Concomitant]
     Indication: DEPRESSION
     Dosage: UNK
     Dates: start: 20041008, end: 20060629
  4. OMEGA 3 MULTI-VITAMIN [Concomitant]
     Dosage: 1 PILL DAILY
  5. YAZ [Suspect]
     Indication: CONTRACEPTION
     Dosage: UNK
     Dates: start: 20060601, end: 20060913
  6. CENTRUM VITAMIN [Concomitant]
     Dosage: 1 PILL DAILY

REACTIONS (8)
  - DYSPNOEA [None]
  - PULMONARY EMBOLISM [None]
  - ATELECTASIS [None]
  - CHEST PAIN [None]
  - PLEURITIC PAIN [None]
  - INJURY [None]
  - PULMONARY INFARCTION [None]
  - PAIN [None]
